FAERS Safety Report 14615733 (Version 1)
Quarter: 2018Q1

REPORT INFORMATION
  Report Type: Spontaneous
  Country: US (occurrence: US)
  Receive Date: 20180309
  Receipt Date: 20180309
  Transmission Date: 20180509
  Serious: No
  Sender: FDA-Public Use
  Company Number: US-009507513-1803USA003278

PATIENT
  Sex: Female
  Weight: 109 kg

DRUGS (2)
  1. ROCURONIUM BROMIDE. [Concomitant]
     Active Substance: ROCURONIUM BROMIDE
  2. BRIDION [Suspect]
     Active Substance: SUGAMMADEX
     Indication: ANAESTHESIA REVERSAL
     Dosage: 4 MG/KG, UNK, 5ML
     Route: 042
     Dates: start: 20180305

REACTIONS (1)
  - Drug effect faster than expected [Recovered/Resolved]

NARRATIVE: CASE EVENT DATE: 20180305
